FAERS Safety Report 14898809 (Version 1)
Quarter: 2018Q2

REPORT INFORMATION
  Report Type: Spontaneous
  Country: US (occurrence: US)
  Receive Date: 20180515
  Receipt Date: 20180515
  Transmission Date: 20180711
  Serious: No
  Sender: FDA-Public Use
  Company Number: US-ENDO PHARMACEUTICALS INC-2017-007321

PATIENT
  Sex: Female

DRUGS (2)
  1. NICOTINE TRANSDERMAL SYSTEM [Concomitant]
     Active Substance: NICOTINE
     Indication: SMOKING CESSATION THERAPY
  2. TRI-PREVIFEM [Suspect]
     Active Substance: ETHINYL ESTRADIOL\NORGESTIMATE
     Indication: CONTRACEPTION
     Dosage: UNK UNK, UNKNOWN
     Route: 065
     Dates: end: 20171114

REACTIONS (1)
  - Decreased appetite [Not Recovered/Not Resolved]
